FAERS Safety Report 7369832-4 (Version None)
Quarter: 2011Q1

REPORT INFORMATION
  Report Type: 
  Country: None (occurrence: None)
  Receive Date: 20110323
  Receipt Date: 20110318
  Transmission Date: 20110831
  Serious: Yes (Other)
  Sender: FDA-Public Use
  Company Number: US-PFIZER INC-2011059514

PATIENT
  Sex: Male
  Weight: 77.1 kg

DRUGS (5)
  1. ALTACE [Concomitant]
     Indication: BLOOD PRESSURE ABNORMAL
     Dosage: 10 MG, UNK
     Dates: start: 19910101
  2. LIPITOR [Suspect]
     Indication: BLOOD CHOLESTEROL INCREASED
     Dosage: 10 MG, 1X/DAY
     Route: 048
     Dates: start: 19910101
  3. ALTACE [Concomitant]
     Indication: ARTERIAL DISORDER
  4. LIPITOR [Suspect]
     Dosage: 80 MG, 1X/DAY
     Route: 048
  5. LIPITOR [Suspect]
     Dosage: 40 MG, 1X/DAY
     Route: 048

REACTIONS (5)
  - HYPOTHYROIDISM [None]
  - PRURITUS [None]
  - HYPERTONIC BLADDER [None]
  - RASH [None]
  - DRUG INEFFECTIVE [None]
